FAERS Safety Report 25013496 (Version 1)
Quarter: 2025Q1

REPORT INFORMATION
  Report Type: Spontaneous
  Country: US (occurrence: US)
  Receive Date: 20250226
  Receipt Date: 20250226
  Transmission Date: 20250408
  Serious: No
  Sender: UCB
  Company Number: US-UCBSA-2024047874

PATIENT
  Age: 13 Year
  Sex: Male

DRUGS (39)
  1. LACOSAMIDE [Suspect]
     Active Substance: LACOSAMIDE
     Indication: Generalised tonic-clonic seizure
     Dosage: 150 MILLIGRAM, 2X/DAY (BID)
  2. LACOSAMIDE [Suspect]
     Active Substance: LACOSAMIDE
     Indication: COVID-19
  3. LACOSAMIDE [Suspect]
     Active Substance: LACOSAMIDE
     Indication: Febrile infection-related epilepsy syndrome
  4. LACOSAMIDE [Suspect]
     Active Substance: LACOSAMIDE
     Indication: Off label use
  5. LEVETIRACETAM [Suspect]
     Active Substance: LEVETIRACETAM
     Indication: Generalised tonic-clonic seizure
     Route: 042
  6. LEVETIRACETAM [Suspect]
     Active Substance: LEVETIRACETAM
     Indication: COVID-19
  7. LEVETIRACETAM [Suspect]
     Active Substance: LEVETIRACETAM
     Indication: Febrile infection-related epilepsy syndrome
  8. LEVETIRACETAM [Suspect]
     Active Substance: LEVETIRACETAM
     Indication: Off label use
  9. LORAZEPAM [Suspect]
     Active Substance: LORAZEPAM
     Indication: Generalised tonic-clonic seizure
     Route: 042
  10. LORAZEPAM [Suspect]
     Active Substance: LORAZEPAM
     Indication: COVID-19
  11. LORAZEPAM [Suspect]
     Active Substance: LORAZEPAM
     Indication: Febrile infection-related epilepsy syndrome
  12. FOSPHENYTOIN [Suspect]
     Active Substance: FOSPHENYTOIN
     Indication: Generalised tonic-clonic seizure
  13. FOSPHENYTOIN [Suspect]
     Active Substance: FOSPHENYTOIN
     Indication: COVID-19
  14. FOSPHENYTOIN [Suspect]
     Active Substance: FOSPHENYTOIN
     Indication: Febrile infection-related epilepsy syndrome
  15. PERAMPANEL [Suspect]
     Active Substance: PERAMPANEL
     Indication: Generalised tonic-clonic seizure
  16. PERAMPANEL [Suspect]
     Active Substance: PERAMPANEL
     Indication: COVID-19
  17. PERAMPANEL [Suspect]
     Active Substance: PERAMPANEL
     Indication: Febrile infection-related epilepsy syndrome
  18. IMMUNE GLOBULIN NOS [Suspect]
     Active Substance: IMMUNE GLOBULIN NOS
     Indication: Generalised tonic-clonic seizure
     Route: 042
  19. IMMUNE GLOBULIN NOS [Suspect]
     Active Substance: IMMUNE GLOBULIN NOS
     Indication: COVID-19
  20. IMMUNE GLOBULIN NOS [Suspect]
     Active Substance: IMMUNE GLOBULIN NOS
     Indication: Febrile infection-related epilepsy syndrome
  21. SOLU-MEDROL [Suspect]
     Active Substance: METHYLPREDNISOLONE SODIUM SUCCINATE
     Indication: Generalised tonic-clonic seizure
  22. SOLU-MEDROL [Suspect]
     Active Substance: METHYLPREDNISOLONE SODIUM SUCCINATE
     Indication: COVID-19
  23. SOLU-MEDROL [Suspect]
     Active Substance: METHYLPREDNISOLONE SODIUM SUCCINATE
     Indication: Febrile infection-related epilepsy syndrome
  24. TOPIRAMATE [Suspect]
     Active Substance: TOPIRAMATE
     Indication: Generalised tonic-clonic seizure
     Dosage: 150 MILLIGRAM, 2X/DAY (BID)
  25. TOPIRAMATE [Suspect]
     Active Substance: TOPIRAMATE
     Indication: COVID-19
  26. TOPIRAMATE [Suspect]
     Active Substance: TOPIRAMATE
     Indication: Febrile infection-related epilepsy syndrome
  27. DOXYCYCLINE [Concomitant]
     Active Substance: DOXYCYCLINE
     Indication: Mycoplasma infection
  28. ANAKINRA [Concomitant]
     Active Substance: ANAKINRA
     Indication: Generalised tonic-clonic seizure
     Dosage: 100 MILLIGRAM, 4X/DAY (QID)
     Route: 042
  29. ANAKINRA [Concomitant]
     Active Substance: ANAKINRA
     Indication: COVID-19
     Dosage: 100 MILLIGRAM, 2X/DAY (BID)
     Route: 058
  30. ANAKINRA [Concomitant]
     Active Substance: ANAKINRA
     Indication: Febrile infection-related epilepsy syndrome
  31. PREDNISONE [Concomitant]
     Active Substance: PREDNISONE
     Indication: Generalised tonic-clonic seizure
     Dosage: 20 MILLIGRAM, ONCE DAILY (QD)
  32. PREDNISONE [Concomitant]
     Active Substance: PREDNISONE
     Indication: COVID-19
  33. PREDNISONE [Concomitant]
     Active Substance: PREDNISONE
     Indication: Febrile infection-related epilepsy syndrome
  34. CLOBAZAM [Concomitant]
     Active Substance: CLOBAZAM
     Indication: Generalised tonic-clonic seizure
     Dosage: 5 MILLIGRAM, 2X/DAY (BID)
  35. CLOBAZAM [Concomitant]
     Active Substance: CLOBAZAM
     Indication: COVID-19
  36. CLOBAZAM [Concomitant]
     Active Substance: CLOBAZAM
     Indication: Febrile infection-related epilepsy syndrome
  37. OXCARBAZEPINE [Concomitant]
     Active Substance: OXCARBAZEPINE
     Indication: Generalised tonic-clonic seizure
     Dosage: 600 MILLIGRAM, 2X/DAY (BID)
  38. OXCARBAZEPINE [Concomitant]
     Active Substance: OXCARBAZEPINE
     Indication: COVID-19
     Dosage: 450 MILLIGRAM, 2X/DAY (BID)
  39. OXCARBAZEPINE [Concomitant]
     Active Substance: OXCARBAZEPINE
     Indication: Febrile infection-related epilepsy syndrome

REACTIONS (2)
  - Off label use [Unknown]
  - Multiple-drug resistance [Unknown]
